FAERS Safety Report 6492284-3 (Version None)
Quarter: 2009Q4

REPORT INFORMATION
  Report Type: 
  Country: None (occurrence: None)
  Receive Date: 20091214
  Receipt Date: 20091210
  Transmission Date: 20100525
  Serious: Yes (Death)
  Sender: FDA-Public Use
  Company Number: PHEH2009US11373

PATIENT
  Sex: Male

DRUGS (14)
  1. EXJADE [Suspect]
     Indication: SERUM FERRITIN INCREASED
     Dosage: 500 MG, TID
     Route: 048
     Dates: start: 20090730
  2. EXJADE [Suspect]
     Indication: MYELODYSPLASTIC SYNDROME
  3. METOPROLOL [Concomitant]
     Dosage: UNK
  4. CALCIUM WITH VITAMIN D [Concomitant]
     Indication: VITAMIN SUPPLEMENTATION
     Dosage: 1 UNK, DAILY
     Route: 048
  5. VITAMIN D [Concomitant]
     Indication: VITAMIN SUPPLEMENTATION
     Dosage: 1000 MG, TID
     Route: 048
  6. TRAZODONE HCL [Concomitant]
     Indication: SLEEP DISORDER
     Dosage: 200 MG, BEDTIME
     Route: 048
  7. ADVAIR DISKUS 100/50 [Concomitant]
     Indication: CHRONIC OBSTRUCTIVE PULMONARY DISEASE
     Dosage: UNK, TWICE DAILY
  8. ALBUTEROL [Concomitant]
  9. FLOMAX [Concomitant]
     Indication: CHRONIC OBSTRUCTIVE PULMONARY DISEASE
     Dosage: 0.4 MG, DAILY
     Route: 045
  10. PROCRIT [Concomitant]
     Indication: MYELODYSPLASTIC SYNDROME
     Dosage: 40, 000 UNK, EVERY WEEK
     Route: 058
  11. PROAIR HFA [Concomitant]
     Indication: CHRONIC OBSTRUCTIVE PULMONARY DISEASE
     Dosage: 90 MEQ, TID
  12. MULTIVITAMIN ^LAPPE^ [Concomitant]
     Indication: VITAMIN SUPPLEMENTATION
     Dosage: 1 UNK, DAILY
     Route: 048
  13. FISH OIL [Concomitant]
     Indication: VITAMIN SUPPLEMENTATION
     Dosage: 1 UNK,DAILY
     Route: 048
  14. CEPHALEXIN [Concomitant]

REACTIONS (3)
  - ABDOMINAL PAIN [None]
  - DEATH [None]
  - DIARRHOEA [None]
